FAERS Safety Report 16095356 (Version 2)
Quarter: 2020Q3

REPORT INFORMATION
  Report Type: Other
  Country: CA (occurrence: CA)
  Receive Date: 20190320
  Receipt Date: 20200720
  Transmission Date: 20201102
  Serious: Yes (Other)
  Sender: FDA-Public Use
  Company Number: CA-BECTON DICKINSON-2019BDN00116

PATIENT
  Age: 42 Year
  Sex: Female
  Weight: 81 kg

DRUGS (33)
  1. ACTEMRA [Suspect]
     Active Substance: TOCILIZUMAB
  2. SULFAMETHOXAZOLE/TRIMETHOPRIM [Suspect]
     Active Substance: SULFAMETHOXAZOLE\TRIMETHOPRIM
  3. DESOGESTREL; ETHINYLESTRADIOL [Concomitant]
  4. OMEGA?3 [DOCOSAHEXAENOIC ACID; EICOSAPENTAENOIC ACID] [Concomitant]
  5. REACTINE [Concomitant]
     Dosage: 10 G, 2 EVERY 1 DAY
  6. ARAVA [Suspect]
     Active Substance: LEFLUNOMIDE
  7. CIMZIA [Suspect]
     Active Substance: CERTOLIZUMAB PEGOL
     Dosage: 200 MG, 1 EVERY 2 WEEKS
     Route: 058
  8. SIMPONI [Suspect]
     Active Substance: GOLIMUMAB
     Route: 058
  9. COENZYME Q?10 [Concomitant]
  10. HYDROXYCHLOROQUINE SULFATE. [Concomitant]
     Active Substance: HYDROXYCHLOROQUINE SULFATE
  11. CHLORHEXIDINE [Suspect]
     Active Substance: CHLORHEXIDINE
  12. VITAMIN D3 [Concomitant]
     Active Substance: CHOLECALCIFEROL
  13. TYLENOL ARTHRITIS PAIN 8 H [Concomitant]
  14. METHOTREXATE. [Suspect]
     Active Substance: METHOTREXATE
  15. PERCOCET [Suspect]
     Active Substance: ACETAMINOPHEN\OXYCODONE HYDROCHLORIDE
  16. PREDNISONE. [Concomitant]
     Active Substance: PREDNISONE
  17. VENTOLIN [Concomitant]
     Active Substance: ALBUTEROL SULFATE
  18. ENBREL [Suspect]
     Active Substance: ETANERCEPT
     Indication: RHEUMATOID ARTHRITIS
     Route: 058
  19. HYDROXYCHLOROQUINE [Concomitant]
     Active Substance: HYDROXYCHLOROQUINE
  20. PANTOPRAZOLE SODIUM. [Concomitant]
     Active Substance: PANTOPRAZOLE SODIUM
  21. CIMZIA [Suspect]
     Active Substance: CERTOLIZUMAB PEGOL
     Indication: RHEUMATOID ARTHRITIS
     Dosage: 400 MG CYCLICAL
     Route: 058
  22. CIMZIA [Suspect]
     Active Substance: CERTOLIZUMAB PEGOL
     Dosage: 400 MG, 1 EVERY 2 WEEKS
     Route: 058
  23. ORENCIA [Suspect]
     Active Substance: ABATACEPT
  24. IBUPROFEN. [Concomitant]
     Active Substance: IBUPROFEN
  25. OMEGA?3 ACIDS [Concomitant]
     Active Substance: OMEGA-3 FATTY ACIDS
  26. PANTOLOC [PANTOPRAZOLE] [Concomitant]
     Active Substance: PANTOPRAZOLE SODIUM
     Dosage: 40 MG, 2 EVERY 1 DAY
  27. VITAMIN C [Concomitant]
     Active Substance: ASCORBIC ACID
  28. ZOPICLONE [Concomitant]
     Active Substance: ZOPICLONE
  29. CHLORHEXIDINE ACETATE [Suspect]
     Active Substance: CHLORHEXIDINE ACETATE
  30. ERGOCALCIFEROL. [Concomitant]
     Active Substance: ERGOCALCIFEROL
  31. NUTRASEA [Concomitant]
  32. TYLENOL [Concomitant]
     Active Substance: ACETAMINOPHEN
  33. UBIDECARENONE [Concomitant]
     Active Substance: UBIDECARENONE

REACTIONS (20)
  - Night sweats [Recovered/Resolved]
  - Insomnia [Recovered/Resolved]
  - Pain [Recovered/Resolved]
  - Peripheral swelling [Recovered/Resolved]
  - Urticaria [Recovered/Resolved]
  - Asthenia [Recovered/Resolved]
  - Joint swelling [Recovered/Resolved]
  - Rash [Recovered/Resolved]
  - Abdominal pain upper [Recovered/Resolved]
  - Ear pain [Recovered/Resolved]
  - Muscle spasticity [Recovered/Resolved]
  - Vomiting [Recovered/Resolved]
  - Back pain [Recovered/Resolved]
  - Body temperature increased [Recovered/Resolved]
  - Diarrhoea [Recovered/Resolved]
  - Headache [Recovered/Resolved]
  - Lower respiratory tract infection [Recovered/Resolved]
  - Pruritus [Recovered/Resolved]
  - Respiratory disorder [Recovered/Resolved]
  - Sinusitis [Recovered/Resolved]
